FAERS Safety Report 6354885-2 (Version None)
Quarter: 2009Q3

REPORT INFORMATION
  Report Type: 
  Country: None (occurrence: None)
  Receive Date: 20090914
  Receipt Date: 20090902
  Transmission Date: 20100115
  Serious: Yes (Other)
  Sender: FDA-Public Use
  Company Number: JP-MERCK-0909USA00936

PATIENT
  Age: 53 Year
  Sex: Female
  Weight: 57 kg

DRUGS (2)
  1. PEPCID [Suspect]
     Indication: ANAESTHETIC PREMEDICATION
     Route: 042
  2. DEXMEDETOMIDINE [Suspect]
     Indication: SEDATION
     Route: 042

REACTIONS (2)
  - GLOSSOPTOSIS [None]
  - SEDATION [None]
